FAERS Safety Report 6955586-X (Version None)
Quarter: 2010Q3

REPORT INFORMATION
  Report Type: 
  Country: None (occurrence: None)
  Receive Date: 20100830
  Receipt Date: 20100823
  Transmission Date: 20110219
  Serious: Yes (Hospitalization)
  Sender: FDA-Public Use
  Company Number: DE-ROCHE-559317

PATIENT
  Sex: Male
  Weight: 80 kg

DRUGS (8)
  1. BEVACIZUMAB [Suspect]
     Dosage: FREQUENCY:ALL 2 WEEKS, 5 MG/KG ON D1+ D14 AS PER PROTOCOL.DATE OF LAST DOSE: 09 APRIL 2008.
     Route: 042
     Dates: start: 20071205, end: 20080416
  2. OXALIPLATIN [Suspect]
     Dosage: FREQUENCY :ALL 2 WEEKS. 100 MG/M2 INFUSION. DATE OF LAST DOSE:09 APRIL 2008.
     Route: 042
     Dates: start: 20071205, end: 20080416
  3. FOLINIC ACID [Suspect]
     Dosage: FREQUENCY: ALL 2 WEEKS. 400 MG/M2 INFUSION. DATE OF LAST DOSE PRIOR TO SAE:09 APRIL 2008
     Route: 042
     Dates: start: 20071205, end: 20080416
  4. FLUOROURACIL [Suspect]
     Dosage: 400 MG/M2 (792 MG) IV BOLUS FOLLOWED BY 2400 MG/M2(4752MG)IV. FREQUENCY REPORTED AS ALL 2 WEEKS.
     Route: 042
     Dates: start: 20071205, end: 20080416
  5. AMARYL [Concomitant]
  6. INSULIN NOVO LENTE [Concomitant]
     Dosage: TDD: 66 /UNIT
  7. MCP [Concomitant]
     Dates: start: 20071219, end: 20080430
  8. LOPEDIUM [Concomitant]
     Dates: start: 20080130, end: 20080430

REACTIONS (2)
  - CEREBRAL ATROPHY [None]
  - CEREBRAL DISORDER [None]
